FAERS Safety Report 18767975 (Version 1)
Quarter: 2021Q1

REPORT INFORMATION
  Report Type: Spontaneous
  Country: FR (occurrence: FR)
  Receive Date: 20210121
  Receipt Date: 20210121
  Transmission Date: 20210419
  Serious: Yes (Other)
  Sender: FDA-Public Use
  Company Number: FR-PFIZER INC-2021032878

PATIENT
  Age: 42 Year
  Sex: Male

DRUGS (1)
  1. DOSTINEX [Suspect]
     Active Substance: CABERGOLINE
     Indication: PITUITARY TUMOUR BENIGN
     Dosage: 0.5 MG, WEEKLY
     Dates: start: 2017

REACTIONS (2)
  - Meningioma [Not Recovered/Not Resolved]
  - Condition aggravated [Not Recovered/Not Resolved]
